FAERS Safety Report 15611011 (Version 1)
Quarter: 2018Q4

REPORT INFORMATION
  Report Type: Spontaneous
  Country: US (occurrence: US)
  Receive Date: 20181113
  Receipt Date: 20181113
  Transmission Date: 20190205
  Serious: Yes (Other)
  Sender: FDA-Public Use
  Company Number: US-ROCHE-2078535

PATIENT
  Age: 61 Year
  Sex: Female
  Weight: 47.22 kg

DRUGS (2)
  1. HERCEPTIN [Suspect]
     Active Substance: TRASTUZUMAB
     Indication: PRODUCT USED FOR UNKNOWN INDICATION
     Route: 042
     Dates: start: 20170310
  2. TAXOL [Concomitant]
     Active Substance: PACLITAXEL
     Route: 065

REACTIONS (20)
  - Angioedema [Recovered/Resolved]
  - Malaise [Recovered/Resolved]
  - Influenza like illness [Unknown]
  - Dyspnoea [Unknown]
  - Restless legs syndrome [Unknown]
  - Sensory disturbance [Unknown]
  - Chills [Unknown]
  - Pleural effusion [Unknown]
  - Back pain [Unknown]
  - Burning sensation [Unknown]
  - Urticaria [Unknown]
  - Wheezing [Unknown]
  - Pruritus [Unknown]
  - Paraesthesia [Unknown]
  - Nasopharyngitis [Unknown]
  - Rhinorrhoea [Unknown]
  - Skin burning sensation [Unknown]
  - Sinus congestion [Unknown]
  - Throat tightness [Unknown]
  - Cough [Unknown]

NARRATIVE: CASE EVENT DATE: 201710
